FAERS Safety Report 4847055-8 (Version None)
Quarter: 2005Q4

REPORT INFORMATION
  Report Type: 
  Country: None (occurrence: None)
  Receive Date: 20051207
  Receipt Date: 20051128
  Transmission Date: 20060501
  Serious: Yes (Hospitalization)
  Sender: FDA-Public Use
  Company Number: US-JNJFOC-20051106404

PATIENT
  Sex: Male
  Weight: 81.65 kg

DRUGS (11)
  1. REMICADE [Suspect]
     Route: 042
  2. REMICADE [Suspect]
     Route: 042
  3. REMICADE [Suspect]
     Route: 042
  4. REMICADE [Suspect]
     Indication: COLITIS
     Route: 042
  5. REMICADE [Suspect]
     Indication: CROHN'S DISEASE
     Route: 042
  6. ASAIAN [Concomitant]
  7. AMESIL [Concomitant]
  8. ACIPHEX [Concomitant]
  9. XIFAXAN [Concomitant]
  10. PREVILITE [Concomitant]
  11. BENADRYL [Concomitant]
     Indication: PREMEDICATION

REACTIONS (2)
  - ABDOMINAL ADHESIONS [None]
  - INTESTINAL OBSTRUCTION [None]
